FAERS Safety Report 9920718 (Version 1)
Quarter: 2014Q1

REPORT INFORMATION
  Report Type: Spontaneous
  Country: US (occurrence: US)
  Receive Date: 20140224
  Receipt Date: 20140224
  Transmission Date: 20141002
  Serious: No
  Sender: FDA-Public Use
  Company Number: US-NOVEN-14US008687

PATIENT
  Sex: Female

DRUGS (1)
  1. MINIVELLE [Suspect]
     Indication: HOT FLUSH
     Dosage: 0.0375 MG/QD, TWICE WEEKLY
     Route: 062

REACTIONS (4)
  - Tendonitis [Unknown]
  - Arthritis [Unknown]
  - Joint swelling [Unknown]
  - Incorrect drug administration duration [Recovered/Resolved]
